FAERS Safety Report 4457011-X (Version None)
Quarter: 2004Q3

REPORT INFORMATION
  Report Type: 
  Country: None (occurrence: None)
  Receive Date: 20040923
  Receipt Date: 20040810
  Transmission Date: 20050211
  Serious: Yes (Life-Threatening)
  Sender: FDA-Public Use
  Company Number: FR-GLAXOSMITHKLINE-B0342029A

PATIENT
  Age: 13 Year
  Sex: Male

DRUGS (4)
  1. AUGMENTIN '125' [Suspect]
     Dosage: 1G PER DAY
     Route: 042
     Dates: start: 20040618, end: 20040618
  2. DIPRIVAN [Suspect]
     Dosage: 300MG PER DAY
     Route: 042
     Dates: start: 20040618, end: 20040618
  3. SUFENTA [Suspect]
     Dosage: 15MCG PER DAY
     Route: 042
     Dates: start: 20040618, end: 20040618
  4. DESFLURANE [Suspect]
     Dosage: 1UNIT PER DAY
     Route: 055
     Dates: start: 20040618, end: 20040618

REACTIONS (1)
  - BRONCHOSPASM [None]
